FAERS Safety Report 20641040 (Version 1)
Quarter: 2022Q1

REPORT INFORMATION
  Report Type: Spontaneous
  Country: FI (occurrence: FI)
  Receive Date: 20220327
  Receipt Date: 20220327
  Transmission Date: 20220423
  Serious: Yes (Other)
  Sender: FDA-Public Use
  Company Number: None

PATIENT
  Age: 38 Year
  Sex: Female

DRUGS (1)
  1. DROSPIRENONE [Suspect]
     Active Substance: DROSPIRENONE
     Indication: Contraception
     Dosage: 4,MG,DAILY
     Route: 048
     Dates: start: 20210101, end: 20220115

REACTIONS (3)
  - Weight decreased [Unknown]
  - Morning sickness [Unknown]
  - Pregnancy on oral contraceptive [Unknown]

NARRATIVE: CASE EVENT DATE: 20220115
